FAERS Safety Report 8547988-5 (Version None)
Quarter: 2012Q3

REPORT INFORMATION
  Report Type: 
  Country: None (occurrence: None)
  Receive Date: 20120729
  Receipt Date: 20120720
  Transmission Date: 20120928
  Serious: No
  Sender: FDA-Public Use
  Company Number: US-009507513-1207USA008391

PATIENT

DRUGS (1)
  1. SINEMET [Suspect]
     Indication: PARKINSON'S DISEASE
     Dosage: 25/100MG, QID
     Route: 048
     Dates: start: 20111101

REACTIONS (6)
  - FEELING ABNORMAL [None]
  - TONGUE INJURY [None]
  - MUSCLE SPASMS [None]
  - DIZZINESS [None]
  - TONGUE BITING [None]
  - ASTHENIA [None]
